FAERS Safety Report 22084609 (Version 6)
Quarter: 2023Q2

REPORT INFORMATION
  Report Type: Spontaneous
  Country: US (occurrence: US)
  Receive Date: 20230310
  Receipt Date: 20230613
  Transmission Date: 20230722
  Serious: Yes (Death, Other)
  Sender: FDA-Public Use
  Company Number: US-PFIZER INC-PV202300042159

PATIENT
  Age: 83 Year
  Sex: Female

DRUGS (2)
  1. IBRANCE [Suspect]
     Active Substance: PALBOCICLIB
     Dosage: UNK
     Dates: end: 20230221
  2. IBRANCE [Suspect]
     Active Substance: PALBOCICLIB
     Dosage: CURRENTLY IN HER 2ND CYCLE/ MONTH OF THERAPY
     Dates: end: 20230328

REACTIONS (10)
  - Death [Fatal]
  - Second primary malignancy [Unknown]
  - Gastrointestinal carcinoma [Unknown]
  - White blood cell count decreased [Recovering/Resolving]
  - Hot flush [Unknown]
  - Alopecia [Unknown]
  - Neutrophil count decreased [Unknown]
  - Pain [Unknown]
  - Neoplasm progression [Unknown]
  - Abdominal pain upper [Unknown]

NARRATIVE: CASE EVENT DATE: 20230501
